FAERS Safety Report 8160286-7 (Version None)
Quarter: 2012Q1

REPORT INFORMATION
  Report Type: 
  Country: None (occurrence: None)
  Receive Date: 20120223
  Receipt Date: 20120223
  Transmission Date: 20120608
  Serious: Yes (Other)
  Sender: FDA-Public Use
  Company Number: None

PATIENT
  Age: 36 Year
  Sex: Male
  Weight: 79.378 kg

DRUGS (1)
  1. LISINOPRIL [Suspect]
     Indication: HYPERTENSION
     Dates: start: 20091110, end: 20091201

REACTIONS (7)
  - WEIGHT INCREASED [None]
  - PYREXIA [None]
  - PRESYNCOPE [None]
  - MUSCULOSKELETAL STIFFNESS [None]
  - PERIARTHRITIS [None]
  - DIZZINESS [None]
  - RASH ERYTHEMATOUS [None]
